FAERS Safety Report 8189439-9 (Version None)
Quarter: 2012Q1

REPORT INFORMATION
  Report Type: 
  Country: None (occurrence: None)
  Receive Date: 20120307
  Receipt Date: 20120305
  Transmission Date: 20120608
  Serious: No
  Sender: FDA-Public Use
  Company Number: US-PFIZER INC-2012058873

PATIENT
  Sex: Male

DRUGS (1)
  1. PEDIATRIC ADVIL [Suspect]
     Dosage: UNK
     Dates: start: 20120305

REACTIONS (2)
  - SOMNOLENCE [None]
  - ACCIDENTAL DRUG INTAKE BY CHILD [None]
